FAERS Safety Report 10815180 (Version 3)
Quarter: 2015Q2

REPORT INFORMATION
  Report Type: Spontaneous
  Country: US (occurrence: US)
  Receive Date: 20150218
  Receipt Date: 20150611
  Transmission Date: 20150821
  Serious: Yes (Other)
  Sender: FDA-Public Use
  Company Number: US-ASTELLAS-2015US004682

PATIENT
  Age: 60 Year
  Sex: Female

DRUGS (3)
  1. VESICARE [Suspect]
     Active Substance: SOLIFENACIN SUCCINATE
     Indication: HYPERTONIC BLADDER
     Route: 048
     Dates: start: 20120320
  2. VESICARE [Suspect]
     Active Substance: SOLIFENACIN SUCCINATE
     Indication: PRODUCT USED FOR UNKNOWN INDICATION
     Route: 048
     Dates: start: 2009
  3. VESICARE [Suspect]
     Active Substance: SOLIFENACIN SUCCINATE
     Route: 048
     Dates: start: 2009

REACTIONS (2)
  - Cataract [Unknown]
  - Ligament sprain [Unknown]

NARRATIVE: CASE EVENT DATE: 201307
